FAERS Safety Report 9280103 (Version 5)
Quarter: 2013Q3

REPORT INFORMATION
  Report Type: Spontaneous
  Country: US (occurrence: US)
  Receive Date: 20130509
  Receipt Date: 20130724
  Transmission Date: 20140515
  Serious: Yes (Hospitalization, Congenital Anomaly, Other)
  Sender: FDA-Public Use
  Company Number: US-JNJFOC-20130504152

PATIENT
  Sex: Male

DRUGS (4)
  1. TOPAMAX [Suspect]
     Indication: FOETAL EXPOSURE DURING PREGNANCY
     Route: 064
     Dates: start: 2007, end: 2008
  2. OMNICEF [Suspect]
     Indication: FOETAL EXPOSURE DURING PREGNANCY
     Route: 064
  3. ERYTHROMYCIN [Suspect]
     Indication: FOETAL EXPOSURE DURING PREGNANCY
     Route: 065
  4. PRENATAL VITAMINS [Concomitant]
     Indication: FOETAL EXPOSURE DURING PREGNANCY
     Route: 064

REACTIONS (8)
  - Deafness [Recovering/Resolving]
  - Nose deformity [Unknown]
  - Emotional disorder [Unknown]
  - Cleft lip [Recovering/Resolving]
  - Eustachian tube dysfunction [Unknown]
  - Anxiety [Unknown]
  - Speech disorder developmental [Unknown]
  - Congenital anomaly [Unknown]
